FAERS Safety Report 6878247-4 (Version None)
Quarter: 2010Q3

REPORT INFORMATION
  Report Type: 
  Country: None (occurrence: None)
  Receive Date: 20100728
  Receipt Date: 20100719
  Transmission Date: 20110219
  Serious: Yes (Other)
  Sender: FDA-Public Use
  Company Number: DE-PFIZER INC-2010075139

PATIENT
  Age: 66 Year
  Sex: Male
  Weight: 71 kg

DRUGS (4)
  1. SORTIS [Suspect]
     Indication: CAROTID ARTERY STENOSIS
     Dosage: 10 MG, UNK
     Route: 048
     Dates: start: 20000101, end: 20100511
  2. SORTIS [Suspect]
     Indication: HYPERCHOLESTEROLAEMIA
  3. ASPIRIN [Concomitant]
     Dosage: 100 MG/DAY
  4. MESALAZINE [Concomitant]
     Indication: COLITIS ULCERATIVE
     Dosage: 500 MG/DAY
     Dates: start: 20000101

REACTIONS (4)
  - BLOOD CREATINE PHOSPHOKINASE INCREASED [None]
  - BLOOD LACTATE DEHYDROGENASE INCREASED [None]
  - MYALGIA [None]
  - RENAL PAIN [None]
